FAERS Safety Report 7347707-4 (Version None)
Quarter: 2011Q1

REPORT INFORMATION
  Report Type: 
  Country: None (occurrence: None)
  Receive Date: 20110311
  Receipt Date: 20110301
  Transmission Date: 20110831
  Serious: Yes (Other)
  Sender: FDA-Public Use
  Company Number: B0703620A

PATIENT
  Sex: Male

DRUGS (4)
  1. ARIXTRA [Suspect]
     Indication: THROMBOSIS PROPHYLAXIS
     Dosage: 2.5MG PER DAY
     Route: 058
     Dates: start: 20110220
  2. NOCTAMIDE [Concomitant]
     Route: 065
  3. VITAMINE B1 B6 [Concomitant]
     Route: 065
  4. SERESTA [Concomitant]
     Route: 065

REACTIONS (2)
  - OFF LABEL USE [None]
  - THROMBOCYTOSIS [None]
